FAERS Safety Report 4865940-8 (Version None)
Quarter: 2005Q4

REPORT INFORMATION
  Report Type: 
  Country: None (occurrence: None)
  Receive Date: 20051226
  Receipt Date: 20051219
  Transmission Date: 20060501
  Serious: Yes (Hospitalization, Disabling)
  Sender: FDA-Public Use
  Company Number: PHFR2005GB04110

PATIENT
  Age: 75 Year
  Sex: Female

DRUGS (5)
  1. ZOMETA [Suspect]
     Indication: METASTASES TO BONE
     Dosage: 4 MG
     Route: 042
     Dates: start: 20031101, end: 20050501
  2. LISINOPRIL [Concomitant]
     Indication: HYPERTENSION
     Route: 065
     Dates: end: 20050501
  3. EXEMESTANE [Concomitant]
     Indication: BREAST CANCER
     Dosage: 25 MG/DAY
     Route: 048
     Dates: start: 20050201
  4. PANTOPRAZOLE [Concomitant]
     Indication: DYSPEPSIA
     Route: 065
  5. INSULIN [Concomitant]
     Indication: DIABETES MELLITUS
     Route: 065

REACTIONS (3)
  - OSTEONECROSIS [None]
  - RENAL IMPAIRMENT [None]
  - SURGERY [None]
